FAERS Safety Report 5716970-5 (Version None)
Quarter: 2008Q2

REPORT INFORMATION
  Report Type: 
  Country: None (occurrence: None)
  Receive Date: 20080424
  Receipt Date: 20080417
  Transmission Date: 20081010
  Serious: Yes (Other)
  Sender: FDA-Public Use
  Company Number: DE-MERCK-0801DEU00077

PATIENT
  Age: 68 Year
  Sex: Female

DRUGS (6)
  1. FOSAMAX [Suspect]
     Indication: OSTEOPOROSIS
     Route: 048
     Dates: start: 19970301, end: 19991001
  2. FOSAMAX [Suspect]
     Route: 048
     Dates: start: 20020201, end: 20050301
  3. DICLOFENAC SODIUM [Concomitant]
     Route: 065
  4. MELOXICAM [Concomitant]
     Route: 065
  5. IBUPROFEN [Concomitant]
     Route: 065
  6. NALOXONE HYDROCHLORIDE AND TILIDINE HYDROCHLORIDE [Concomitant]
     Route: 065

REACTIONS (2)
  - DENTAL ALVEOLAR ANOMALY [None]
  - PERIPHERAL VASCULAR DISORDER [None]
